FAERS Safety Report 5594003-1 (Version None)
Quarter: 2008Q1

REPORT INFORMATION
  Report Type: 
  Country: None (occurrence: None)
  Receive Date: 20080116
  Receipt Date: 20080108
  Transmission Date: 20080703
  Serious: Yes (Other)
  Sender: FDA-Public Use
  Company Number: GB-PFIZER INC-2008002687

PATIENT
  Age: 41 Year
  Sex: Female
  Weight: 65 kg

DRUGS (2)
  1. CHANTIX [Suspect]
     Indication: SMOKING CESSATION THERAPY
     Route: 048
     Dates: start: 20071102, end: 20071127
  2. CITALOPRAM [Concomitant]
     Indication: DEPRESSION
     Route: 048

REACTIONS (3)
  - MOOD ALTERED [None]
  - SUICIDAL IDEATION [None]
  - TEARFULNESS [None]
